FAERS Safety Report 15587367 (Version 2)
Quarter: 2018Q4

REPORT INFORMATION
  Report Type: Spontaneous
  Country: US (occurrence: US)
  Receive Date: 20181105
  Receipt Date: 20181122
  Transmission Date: 20190205
  Serious: Yes (Other)
  Sender: FDA-Public Use
  Company Number: US-JNJFOC-20181040252

PATIENT
  Sex: Male

DRUGS (13)
  1. TRIAMCINOLONE [Concomitant]
     Active Substance: TRIAMCINOLONE
     Route: 065
  2. METOPROLOL. [Concomitant]
     Active Substance: METOPROLOL
     Route: 065
  3. OMEPRAZOLE. [Concomitant]
     Active Substance: OMEPRAZOLE
     Route: 065
  4. LOSARTAN. [Concomitant]
     Active Substance: LOSARTAN
     Route: 065
  5. CENTRUM [Concomitant]
     Active Substance: VITAMINS
     Route: 065
  6. FEXOFENADINE [Concomitant]
     Active Substance: FEXOFENADINE\FEXOFENADINE HYDROCHLORIDE
     Route: 065
  7. XGEVA [Concomitant]
     Active Substance: DENOSUMAB
     Route: 065
  8. ZYTIGA [Suspect]
     Active Substance: ABIRATERONE ACETATE
     Indication: PROSTATE CANCER
     Route: 048
     Dates: start: 20150126
  9. LUPRON [Concomitant]
     Active Substance: LEUPROLIDE ACETATE
     Route: 065
  10. LIPRON [Concomitant]
     Route: 065
  11. FLUTICASONE. [Concomitant]
     Active Substance: FLUTICASONE
     Route: 065
  12. AMLODIPINE BESYLATE. [Concomitant]
     Active Substance: AMLODIPINE BESYLATE
     Route: 065
  13. PREDNISONE. [Concomitant]
     Active Substance: PREDNISONE
     Route: 065

REACTIONS (2)
  - Fall [Unknown]
  - Foot operation [Unknown]
